FAERS Safety Report 6469031-4 (Version None)
Quarter: 2009Q4

REPORT INFORMATION
  Report Type: 
  Country: None (occurrence: None)
  Receive Date: 20091203
  Receipt Date: 20091123
  Transmission Date: 20100525
  Serious: Yes (Other)
  Sender: FDA-Public Use
  Company Number: PHHY2009CA51660

PATIENT
  Sex: Female

DRUGS (1)
  1. DIOVAN HCT [Suspect]
     Dosage: 1 TABLET (80/12.5 MG) DAILY
     Route: 048

REACTIONS (4)
  - APTYALISM [None]
  - BURNING SENSATION [None]
  - DENTAL OPERATION [None]
  - DRY MOUTH [None]
